FAERS Safety Report 13611103 (Version 1)
Quarter: 2017Q2

REPORT INFORMATION
  Report Type: Spontaneous
  Country: US (occurrence: US)
  Receive Date: 20170605
  Receipt Date: 20170605
  Transmission Date: 20170830
  Serious: No
  Sender: FDA-Public Use
  Company Number: US-BIOGEN-2017BI00410235

PATIENT
  Sex: Female

DRUGS (3)
  1. TYSABRI [Suspect]
     Active Substance: NATALIZUMAB
     Indication: MULTIPLE SCLEROSIS
     Route: 065
     Dates: start: 20080201
  2. TYSABRI [Suspect]
     Active Substance: NATALIZUMAB
     Route: 065
     Dates: start: 20160315, end: 20170207
  3. TYSABRI [Suspect]
     Active Substance: NATALIZUMAB
     Route: 065
     Dates: start: 20080911, end: 20150915

REACTIONS (8)
  - Abdominal pain [Unknown]
  - Chest pain [Unknown]
  - Headache [Unknown]
  - Insomnia [Unknown]
  - Constipation [Unknown]
  - Stress [Unknown]
  - Depression [Unknown]
  - Musculoskeletal stiffness [Unknown]
